FAERS Safety Report 18303507 (Version 1)
Quarter: 2020Q3

REPORT INFORMATION
  Report Type: Spontaneous
  Country: DE (occurrence: DE)
  Receive Date: 20200924
  Receipt Date: 20200924
  Transmission Date: 20201103
  Serious: Yes (Life-Threatening, Hospitalization)
  Sender: FDA-Public Use
  Company Number: DE-DRREDDYS-GER/GER/20/0127052

PATIENT
  Age: 92 Year
  Sex: Female

DRUGS (14)
  1. TORASEMID [Suspect]
     Active Substance: TORSEMIDE
     Indication: PRODUCT USED FOR UNKNOWN INDICATION
     Dosage: 10 MG, 1?0?0?0, TABLETTEN
     Route: 048
  2. AMLODIPIN [Concomitant]
     Active Substance: AMLODIPINE BESYLATE
     Indication: PRODUCT USED FOR UNKNOWN INDICATION
     Dosage: 10 MG, 0?0?1?0, TABLETTEN
  3. MOXONIDINE [Suspect]
     Active Substance: MOXONIDINE
     Indication: PRODUCT USED FOR UNKNOWN INDICATION
     Dosage: 0.2 MG, 1?0?0?1, TABLETTEN
     Route: 048
  4. SITAGLIPTIN [Concomitant]
     Active Substance: SITAGLIPTIN
     Indication: PRODUCT USED FOR UNKNOWN INDICATION
     Dosage: 50 MG, 1?0?0?0, TABLETTEN
     Route: 048
  5. OMEPRAZOLE. [Concomitant]
     Active Substance: OMEPRAZOLE
     Indication: PRODUCT USED FOR UNKNOWN INDICATION
     Dosage: 20 MG, 1?0?0?0, KAPSELN
     Route: 048
  6. TILIDINE W/NALOXONE [Concomitant]
     Active Substance: NALOXONE HYDROCHLORIDE\TILIDINE HYDROCHLORIDE
     Indication: PRODUCT USED FOR UNKNOWN INDICATION
     Dosage: 4|50 MG, 1?0?1?0, TABLETTEN
     Route: 048
  7. EZETIMIBE W/SIMVASTATIN [Concomitant]
     Active Substance: EZETIMIBE
     Indication: PRODUCT USED FOR UNKNOWN INDICATION
     Dosage: 10|20 MG, 0?0?0?1, TABLETTEN
     Route: 048
  8. CANDESARTAN. [Concomitant]
     Active Substance: CANDESARTAN
     Indication: PRODUCT USED FOR UNKNOWN INDICATION
     Dosage: 16 MG, 1?0?1?0, TABLETTEN
     Route: 048
  9. METOPROLOL. [Suspect]
     Active Substance: METOPROLOL
     Indication: PRODUCT USED FOR UNKNOWN INDICATION
     Dosage: 47.5 MG, 2?0?1?0, RETARD?TABLETTEN
     Route: 048
  10. OPIPRAMOL [Concomitant]
     Active Substance: OPIPRAMOL
     Indication: PRODUCT USED FOR UNKNOWN INDICATION
     Dosage: 50 MG, 0?0?0.5?0, TABLETTEN
     Route: 048
  11. NATRIUMPICOSULFAT [Concomitant]
     Indication: PRODUCT USED FOR UNKNOWN INDICATION
     Dosage: 7.5 MG, 0?0?6?0, TROPFEN (DROPS)
     Route: 048
  12. SPIRONOLACTONE. [Suspect]
     Active Substance: SPIRONOLACTONE
     Indication: PRODUCT USED FOR UNKNOWN INDICATION
     Dosage: 50 MG, 0.5?0?0?0, TABLETTEN
     Route: 048
  13. ACETYLSALICYLS?URE [Concomitant]
     Active Substance: ASPIRIN
     Indication: PRODUCT USED FOR UNKNOWN INDICATION
     Dosage: 100 MG, 1?0?0?0, TABLETTEN
     Route: 048
  14. INSULIN (HUMAN)/INSULIN?ISOPHAN (HUMAN) [Concomitant]
     Indication: PRODUCT USED FOR UNKNOWN INDICATION
     Dosage: 25|75 IE, 18?0?12?0
     Route: 058

REACTIONS (10)
  - Condition aggravated [Recovering/Resolving]
  - Acute kidney injury [Recovering/Resolving]
  - Hyponatraemia [Recovering/Resolving]
  - Dyspnoea [Recovering/Resolving]
  - Bradycardia [Recovering/Resolving]
  - General physical health deterioration [Recovering/Resolving]
  - Electrolyte imbalance [Recovering/Resolving]
  - Malaise [Recovering/Resolving]
  - Arrhythmia [Recovering/Resolving]
  - Dizziness [Recovering/Resolving]
